FAERS Safety Report 6890423-3 (Version None)
Quarter: 2010Q3

REPORT INFORMATION
  Report Type: 
  Country: None (occurrence: None)
  Receive Date: 20100730
  Receipt Date: 20081024
  Transmission Date: 20110219
  Serious: Yes (Other)
  Sender: FDA-Public Use
  Company Number: US-PFIZER INC-2008090185

PATIENT
  Sex: Male
  Weight: 109.09 kg

DRUGS (5)
  1. LIPITOR [Suspect]
     Indication: BLOOD CHOLESTEROL INCREASED
     Dates: start: 20020101
  2. LIPITOR [Suspect]
     Indication: CARDIAC DISORDER
  3. AVANDAMET [Suspect]
     Indication: DIABETES MELLITUS
  4. ACTOS [Concomitant]
  5. AVANDIA [Concomitant]
     Indication: DIABETES MELLITUS

REACTIONS (10)
  - ARTHRALGIA [None]
  - ARTHRITIS [None]
  - BLOOD GLUCOSE INCREASED [None]
  - BLOOD TRIGLYCERIDES INCREASED [None]
  - DRY MOUTH [None]
  - DYSGEUSIA [None]
  - HIGH DENSITY LIPOPROTEIN DECREASED [None]
  - MEDICATION ERROR [None]
  - MUSCULOSKELETAL STIFFNESS [None]
  - WRONG TECHNIQUE IN DRUG USAGE PROCESS [None]
